FAERS Safety Report 11870034 (Version 1)
Quarter: 2015Q4

REPORT INFORMATION
  Report Type: Spontaneous
  Country: US (occurrence: US)
  Receive Date: 20151228
  Receipt Date: 20151228
  Transmission Date: 20160305
  Serious: Yes (Other)
  Sender: FDA-Public Use
  Company Number: US-TEVA-621429ACC

PATIENT
  Sex: Female
  Weight: 54.03 kg

DRUGS (1)
  1. PARAGARD T 380A [Suspect]
     Active Substance: COPPER
     Indication: CONTRACEPTION
     Dates: start: 20141229, end: 20151215

REACTIONS (7)
  - Gardnerella test positive [Not Recovered/Not Resolved]
  - Vaginal discharge [Unknown]
  - Menorrhagia [Recovered/Resolved]
  - Device dislocation [Recovered/Resolved]
  - Vulvovaginal pruritus [Unknown]
  - Pelvic pain [Recovered/Resolved]
  - Dysmenorrhoea [Recovered/Resolved]
